FAERS Safety Report 7092028-0 (Version None)
Quarter: 2010Q4

REPORT INFORMATION
  Report Type: 
  Country: None (occurrence: None)
  Receive Date: 20101109
  Receipt Date: 20080908
  Transmission Date: 20110411
  Serious: No
  Sender: FDA-Public Use
  Company Number: US-KINGPHARMUSA00001-K200801047

PATIENT
  Sex: Female
  Weight: 121.9 kg

DRUGS (9)
  1. SKELAXIN [Suspect]
     Indication: BACK PAIN
     Dosage: 800 MG, UNK
     Route: 048
     Dates: start: 20080528, end: 20080101
  2. XANAX [Concomitant]
     Indication: HYPERTHYROIDISM
  3. HYDROCODONE [Concomitant]
     Indication: PAIN
  4. MIDOL                              /00095101/ [Concomitant]
     Indication: DYSMENORRHOEA
  5. MIDOL                              /00095101/ [Concomitant]
     Indication: SINUS HEADACHE
  6. ADVIL LIQUI-GELS [Concomitant]
     Indication: DYSMENORRHOEA
  7. ADVIL LIQUI-GELS [Concomitant]
     Indication: SINUS HEADACHE
  8. TYLENOL W/ CODEINE NO. 2 [Concomitant]
     Indication: DYSMENORRHOEA
     Dosage: UNK, UNK
  9. TYLENOL W/ CODEINE NO. 2 [Concomitant]
     Indication: SINUS HEADACHE

REACTIONS (3)
  - DRUG SCREEN FALSE POSITIVE [None]
  - FEELING ABNORMAL [None]
  - HYPOAESTHESIA ORAL [None]
